FAERS Safety Report 15374057 (Version 3)
Quarter: 2018Q3

REPORT INFORMATION
  Report Type: Report from Study
  Country: KR (occurrence: KR)
  Receive Date: 20180912
  Receipt Date: 20180924
  Transmission Date: 20181010
  Serious: Yes (Hospitalization)
  Sender: FDA-Public Use
  Company Number: KR-ROCHE-2175854

PATIENT
  Age: 35 Year
  Sex: Female
  Weight: 49 kg

DRUGS (11)
  1. CYCLOPHOSPHAMIDE. [Suspect]
     Active Substance: CYCLOPHOSPHAMIDE
     Indication: BREAST CANCER
     Dosage: DATE OF MOST RECENT DOSE OF CYCLOPHOSPHAMIDE (695 MG) PRIOR TO AE ONSET: 16/MAY/2018 AT 14.29
     Route: 042
     Dates: start: 20180328
  2. APREPITANT. [Concomitant]
     Active Substance: APREPITANT
     Indication: PROPHYLAXIS
     Route: 048
     Dates: start: 20180328
  3. ATEZOLIZUMAB. [Suspect]
     Active Substance: ATEZOLIZUMAB
     Indication: BREAST CANCER
     Dosage: DATE OF MOST RECENT DOSE (1200 MG) OF UNBLINDED ATEZOLIZUMAB PRIOR TO AE ONSET: 08/AUG/2018 AT 13.22
     Route: 042
     Dates: start: 20180718
  4. GRANISETRON [Concomitant]
     Active Substance: GRANISETRON
     Indication: NAUSEA
     Route: 061
     Dates: start: 20180505
  5. NAB?PACLITAXEL [Suspect]
     Active Substance: PACLITAXEL
     Indication: BREAST CANCER
     Dosage: DATE OF MOST RECENT DOSE OF NAB?PACLITAXEL (147 MG) PRIOR TO AE ONSET: 14/MAR/2018 AT 12.49
     Route: 042
     Dates: start: 20171220
  6. EV CREAM (UNK INGREDIENTS) [Concomitant]
     Indication: PARONYCHIA
     Route: 061
     Dates: start: 20180510
  7. MUPIROCIN. [Concomitant]
     Active Substance: MUPIROCIN
     Indication: PARONYCHIA
     Route: 061
     Dates: start: 20180510
  8. DOXORUBICIN [Suspect]
     Active Substance: DOXORUBICIN
     Indication: BREAST CANCER
     Dosage: DATE OF MOST RECENT DOSE OF DOXORUBICIN (70 MG) PRIOR TO AE ONSET: 16/MAY/2018 AT 13.56
     Route: 042
     Dates: start: 20180328
  9. APREPITANT. [Concomitant]
     Active Substance: APREPITANT
     Indication: NAUSEA
     Route: 048
     Dates: start: 20180329
  10. ATEZOLIZUMAB. [Suspect]
     Active Substance: ATEZOLIZUMAB
     Indication: BREAST CANCER
     Dosage: DATE OF MOST RECENT DOSE OF ATEZOLIZUMAB PRIOR TO AE ONSET: 16/MAY/2018 AT 12.44
     Route: 042
     Dates: start: 20171220
  11. LEUPROLIDE [Concomitant]
     Active Substance: LEUPROLIDE
     Indication: MANAGEMENT OF REPRODUCTION
     Route: 058
     Dates: start: 20171207

REACTIONS (2)
  - Pyelonephritis acute [Recovered/Resolved]
  - Colitis [Recovered/Resolved]

NARRATIVE: CASE EVENT DATE: 20180824
